FAERS Safety Report 6030687-1 (Version None)
Quarter: 2009Q1

REPORT INFORMATION
  Report Type: 
  Country: None (occurrence: None)
  Receive Date: 20090107
  Receipt Date: 20081231
  Transmission Date: 20090719
  Serious: Yes (Hospitalization, Other)
  Sender: FDA-Public Use
  Company Number: NZ-ROXANE LABORATORIES, INC.-2008-RO-00509RO

PATIENT
  Age: 26 Year
  Sex: Female

DRUGS (4)
  1. AZATHIOPRINE [Suspect]
     Indication: CROHN'S DISEASE
     Dosage: 200MG
  2. AZATHIOPRINE [Suspect]
     Dosage: 150MG
  3. MESALAZINE [Suspect]
  4. ORAL CONTRACEPTIVE [Suspect]
     Route: 048

REACTIONS (3)
  - DRUG INEFFECTIVE [None]
  - HEPATOTOXICITY [None]
  - LABORATORY TEST ABNORMAL [None]
